FAERS Safety Report 5787753-5 (Version None)
Quarter: 2008Q2

REPORT INFORMATION
  Report Type: 
  Country: None (occurrence: None)
  Receive Date: 20080625
  Receipt Date: 20080620
  Transmission Date: 20081010
  Serious: Yes (Death, Hospitalization)
  Sender: FDA-Public Use
  Company Number: JP-GILEAD-E2B_00000103

PATIENT
  Sex: Female

DRUGS (8)
  1. HEPSERA [Suspect]
     Indication: HEPATITIS B
     Dosage: 10MG PER DAY
     Route: 048
     Dates: start: 20080115, end: 20080222
  2. ZEFIX [Concomitant]
     Indication: HEPATITIS B
     Dosage: 100MG PER DAY
     Route: 048
     Dates: start: 20040507, end: 20080222
  3. FUROSEMIDE [Concomitant]
     Indication: HEPATITIS B
     Dosage: 40MG PER DAY
     Route: 048
  4. ALDACTONE [Concomitant]
     Indication: HEPATITIS B
     Dosage: 50MG PER DAY
     Route: 048
  5. ACINON [Concomitant]
     Indication: GASTRIC ULCER
     Dosage: 300MG PER DAY
     Route: 048
  6. PROMAC [Concomitant]
     Indication: GASTRIC ULCER
     Dosage: 150MG PER DAY
     Route: 048
  7. NOVOLIN [Concomitant]
     Indication: DIABETES MELLITUS
     Route: 058
  8. BARACLUDE [Concomitant]
     Indication: HEPATITIS B
     Dates: start: 20080222

REACTIONS (9)
  - ACUTE RESPIRATORY DISTRESS SYNDROME [None]
  - ASCITES [None]
  - INTERSTITIAL LUNG DISEASE [None]
  - LUNG INFILTRATION [None]
  - OEDEMA PERIPHERAL [None]
  - PULMONARY FIBROSIS [None]
  - PULMONARY OEDEMA [None]
  - RESPIRATORY DISORDER [None]
  - TUBERCULOSIS [None]
